FAERS Safety Report 7042161-4 (Version None)
Quarter: 2010Q4

REPORT INFORMATION
  Report Type: 
  Country: None (occurrence: None)
  Receive Date: 20101013
  Receipt Date: 20100119
  Transmission Date: 20110411
  Serious: No
  Sender: FDA-Public Use
  Company Number: US-ASTRAZENECA-2010SE02418

PATIENT
  Age: 64 Year
  Sex: Female

DRUGS (3)
  1. SYMBICORT [Suspect]
     Indication: ASTHMA
     Dosage: 160/4.5 UG, 2 PUFFS
     Route: 055
     Dates: start: 20091220
  2. PROAIR HFA [Concomitant]
     Indication: ASTHMA
  3. NEXIUM [Concomitant]
     Indication: REFLUX OESOPHAGITIS
     Route: 048
     Dates: start: 20070101

REACTIONS (2)
  - COUGH [None]
  - RETCHING [None]
